FAERS Safety Report 4524156-5 (Version None)
Quarter: 2004Q4

REPORT INFORMATION
  Report Type: 
  Country: None (occurrence: None)
  Receive Date: 20041209
  Receipt Date: 20041125
  Transmission Date: 20050328
  Serious: Yes (Life-Threatening)
  Sender: FDA-Public Use
  Company Number: 2003AP04470

PATIENT
  Age: 74 Year
  Sex: Male

DRUGS (4)
  1. CASODEX [Suspect]
     Indication: PROSTATE CANCER
     Dosage: 80 MG DAILY PO
     Route: 048
     Dates: start: 20011214, end: 20011217
  2. ZOLADEX [Suspect]
     Indication: PROSTATE CANCER
     Dosage: 3.6 MG Q4WK SQ
     Route: 058
     Dates: start: 20011217, end: 20011217
  3. HONVAN [Suspect]
     Indication: PROSTATE CANCER
     Dosage: 500 MG DAILY IVD
     Route: 041
     Dates: start: 20011218, end: 20011222
  4. FOY [Concomitant]

REACTIONS (2)
  - INTERSTITIAL LUNG DISEASE [None]
  - PLEURAL EFFUSION [None]
